FAERS Safety Report 6906080-3 (Version None)
Quarter: 2010Q3

REPORT INFORMATION
  Report Type: 
  Country: None (occurrence: None)
  Receive Date: 20100804
  Receipt Date: 20100726
  Transmission Date: 20110219
  Serious: Yes (Death)
  Sender: FDA-Public Use
  Company Number: JP-ALLERGAN-1007806US

PATIENT
  Age: 3 Year
  Sex: Male
  Weight: 7 kg

DRUGS (6)
  1. BOTOX INJECTION 100 [Suspect]
     Indication: TORTICOLLIS
     Dosage: 25 UNITS, SINGLE
     Route: 030
     Dates: start: 20070316, end: 20070316
  2. BOTOX INJECTION 100 [Suspect]
     Dosage: 40 UNITS, SINGLE
     Route: 030
     Dates: start: 20060714, end: 20060714
  3. BOTOX INJECTION 100 [Suspect]
     Dosage: 40 UNITS, SINGLE
     Route: 030
     Dates: start: 20061117, end: 20061117
  4. GABALON [Concomitant]
     Indication: TORTICOLLIS
     Dosage: UNK
     Route: 048
     Dates: start: 20060714
  5. TRICLORYL [Concomitant]
     Indication: SEDATION
     Dosage: 5 UNK, UNK
     Route: 048
     Dates: start: 20060714
  6. DIAZEPAM [Concomitant]
     Indication: TORTICOLLIS
     Dosage: 0.2 G, QD
     Route: 048
     Dates: start: 20060714

REACTIONS (1)
  - SUDDEN DEATH [None]
